FAERS Safety Report 8188317-9 (Version None)
Quarter: 2012Q1

REPORT INFORMATION
  Report Type: 
  Country: None (occurrence: None)
  Receive Date: 20120306
  Receipt Date: 20120223
  Transmission Date: 20120608
  Serious: Yes (Other)
  Sender: FDA-Public Use
  Company Number: JP-ELI_LILLY_AND_COMPANY-JP201202006959

PATIENT
  Age: 70 Year
  Sex: Female

DRUGS (5)
  1. DAISPAS [Concomitant]
     Dosage: UNK
     Route: 048
     Dates: start: 20120214
  2. REBAMIPIDE [Concomitant]
     Dosage: UNK
     Route: 048
     Dates: start: 20120214
  3. ELCITONIN [Concomitant]
     Dosage: UNK, WEEKLY (1/W)
     Route: 030
     Dates: start: 20120214
  4. FORTEO [Suspect]
     Indication: OSTEOPOROSIS
     Dosage: 20 UG, QD
     Route: 058
     Dates: start: 20120221, end: 20120221
  5. FAMOTIDINE [Concomitant]
     Dosage: UNK
     Route: 048
     Dates: start: 20120214

REACTIONS (5)
  - NAUSEA [None]
  - HEADACHE [None]
  - HOT FLUSH [None]
  - DIZZINESS [None]
  - HYPOAESTHESIA [None]
